FAERS Safety Report 24982242 (Version 1)
Quarter: 2025Q1

REPORT INFORMATION
  Report Type: Spontaneous
  Country: US (occurrence: None)
  Receive Date: 20250216
  Receipt Date: 20250216
  Transmission Date: 20250408
  Serious: Yes (Hospitalization, Disabling)
  Sender: FDA-CTU
  Company Number: None

PATIENT
  Age: 30 Year
  Sex: Female
  Weight: 63 kg

DRUGS (2)
  1. METOCLOPRAMIDE [Suspect]
     Active Substance: METOCLOPRAMIDE
     Indication: Headache
     Route: 042
     Dates: start: 20250204, end: 20250204
  2. BENADRYL [Suspect]
     Active Substance: DIPHENHYDRAMINE HYDROCHLORIDE

REACTIONS (12)
  - Tremor [None]
  - Tremor [None]
  - Hypophagia [None]
  - Nausea [None]
  - Insomnia [None]
  - Fatigue [None]
  - Anxiety [None]
  - Tachycardia [None]
  - Restless legs syndrome [None]
  - Blood pressure increased [None]
  - Vertigo [None]
  - Oral discomfort [None]

NARRATIVE: CASE EVENT DATE: 20250205
